FAERS Safety Report 10054884 (Version 1)
Quarter: 2014Q2

REPORT INFORMATION
  Report Type: Spontaneous
  Country: US (occurrence: US)
  Receive Date: 20140402
  Receipt Date: 20140402
  Transmission Date: 20141212
  Serious: Yes (Death)
  Sender: FDA-Public Use
  Company Number: US-LUNDBECK-DKLU1098739

PATIENT
  Sex: Male

DRUGS (8)
  1. SABRIL (FOR ORAL SOLUTION) [Suspect]
     Indication: INFANTILE SPASMS
     Dates: start: 20130910
  2. ONFI [Concomitant]
     Indication: PRODUCT USED FOR UNKNOWN INDICATION
  3. TEGRETOL [Concomitant]
     Indication: PRODUCT USED FOR UNKNOWN INDICATION
  4. KLONOPIN [Concomitant]
     Indication: PRODUCT USED FOR UNKNOWN INDICATION
  5. VALIUM [Concomitant]
     Indication: PRODUCT USED FOR UNKNOWN INDICATION
  6. KEPPRA [Concomitant]
     Indication: PRODUCT USED FOR UNKNOWN INDICATION
  7. DEPAKOTE [Concomitant]
     Indication: PRODUCT USED FOR UNKNOWN INDICATION
  8. PHENOBARBITAL [Concomitant]
     Indication: PRODUCT USED FOR UNKNOWN INDICATION

REACTIONS (1)
  - Death [Fatal]
